FAERS Safety Report 9818342 (Version 1)
Quarter: 2014Q1

REPORT INFORMATION
  Report Type: Spontaneous
  Country: US (occurrence: None)
  Receive Date: 20140113
  Receipt Date: 20140113
  Transmission Date: 20141002
  Serious: Yes (Hospitalization)
  Sender: FDA-Public Use
  Company Number: None

PATIENT
  Age: 58 Year
  Sex: Male
  Weight: 119.2 kg

DRUGS (1)
  1. BACTRIM DS [Suspect]
     Indication: INFECTION
     Dosage: 1 TAB
     Route: 048
     Dates: start: 20131230, end: 20140105

REACTIONS (1)
  - Renal failure acute [None]
